FAERS Safety Report 16683445 (Version 1)
Quarter: 2019Q3

REPORT INFORMATION
  Report Type: Report from Study
  Country: None (occurrence: DE)
  Receive Date: 20190808
  Receipt Date: 20190808
  Transmission Date: 20191004
  Serious: Yes (Hospitalization)
  Sender: FDA-Public Use
  Company Number: DE-ABBVIE-19K-062-2879422-00

PATIENT
  Sex: Female

DRUGS (1)
  1. DUODOPA [Suspect]
     Active Substance: CARBIDOPA\LEVODOPA
     Indication: PARKINSON^S DISEASE
     Dosage: MD 6.0 ML; CRD 5.0 ML/H; CRN 3.0 ML/H, ED 3.0 ML
     Route: 050
     Dates: start: 20160630

REACTIONS (2)
  - Mobility decreased [Unknown]
  - On and off phenomenon [Unknown]
